FAERS Safety Report 6336703-1 (Version None)
Quarter: 2009Q3

REPORT INFORMATION
  Report Type: 
  Country: None (occurrence: None)
  Receive Date: 20090831
  Receipt Date: 20090831
  Transmission Date: 20100115
  Serious: Yes (Life-Threatening, Hospitalization, Disabling, Other)
  Sender: FDA-Public Use
  Company Number: None

PATIENT
  Age: 52 Year
  Sex: Female
  Weight: 63.5036 kg

DRUGS (1)
  1. CHANTIX [Suspect]
     Indication: SMOKING CESSATION THERAPY
     Dosage: 1 TABLET TWICE A DAY UNK
     Dates: start: 20090323, end: 20090429

REACTIONS (12)
  - CONFUSIONAL STATE [None]
  - DEPRESSION [None]
  - DISTURBANCE IN ATTENTION [None]
  - HALLUCINATION [None]
  - HOSTILITY [None]
  - HYPERTENSION [None]
  - INSOMNIA [None]
  - INTENTIONAL OVERDOSE [None]
  - IRRITABILITY [None]
  - OVERDOSE [None]
  - PANIC ATTACK [None]
  - TACHYPHRENIA [None]
